FAERS Safety Report 15158581 (Version 2)
Quarter: 2018Q3

REPORT INFORMATION
  Report Type: Spontaneous
  Country: DE (occurrence: DE)
  Receive Date: 20180718
  Receipt Date: 20180718
  Transmission Date: 20181010
  Serious: Yes (Other)
  Sender: FDA-Public Use
  Company Number: PHHY2018DE042134

PATIENT
  Age: 35 Year
  Sex: Female

DRUGS (3)
  1. LORATADINE. [Suspect]
     Active Substance: LORATADINE
     Indication: HERPES GESTATIONIS
     Route: 065
  2. PREDNISOLONE. [Suspect]
     Active Substance: PREDNISOLONE
     Indication: HERPES GESTATIONIS
     Dosage: 30 MG, QD
     Route: 048
  3. PREDNISOLONE. [Suspect]
     Active Substance: PREDNISOLONE
     Dosage: 60 MG, QD
     Route: 048

REACTIONS (5)
  - Blister [Unknown]
  - Foetal death [Unknown]
  - Product use in unapproved indication [Unknown]
  - Pruritus [Unknown]
  - Maternal exposure during pregnancy [Unknown]
